FAERS Safety Report 10497788 (Version 3)
Quarter: 2015Q1

REPORT INFORMATION
  Report Type: Report from Study
  Country: US (occurrence: US)
  Receive Date: 20141006
  Receipt Date: 20150313
  Transmission Date: 20150720
  Serious: Yes (Other)
  Sender: FDA-Public Use
  Company Number: US-SA-2013SA132336

PATIENT
  Age: 49 Year
  Sex: Male

DRUGS (6)
  1. OXYCONTIN [Concomitant]
     Active Substance: OXYCODONE HYDROCHLORIDE
     Dosage: UPTO 3 PER DAY
  2. PRILOSEC [Concomitant]
     Active Substance: OMEPRAZOLE MAGNESIUM
     Dates: start: 2013
  3. VERAPAMIL [Concomitant]
     Active Substance: VERAPAMIL HYDROCHLORIDE
  4. AUBAGIO [Suspect]
     Active Substance: TERIFLUNOMIDE
     Indication: MULTIPLE SCLEROSIS
     Route: 048
     Dates: start: 20131108, end: 20150201
  5. XANAX [Concomitant]
     Active Substance: ALPRAZOLAM
     Dosage: QHS
  6. HYDROCHLOROTHIAZIDE/LISINOPRIL [Concomitant]
     Indication: BLOOD PRESSURE INCREASED
     Dosage: 20-12.5 DAILY
     Dates: start: 2013

REACTIONS (19)
  - Motion sickness [Unknown]
  - Asthenia [Unknown]
  - Joint injury [Unknown]
  - Depression [Unknown]
  - Condition aggravated [Unknown]
  - Visual impairment [Not Recovered/Not Resolved]
  - Gait disturbance [Not Recovered/Not Resolved]
  - Clavicle fracture [Not Recovered/Not Resolved]
  - Balance disorder [Unknown]
  - Anger [Unknown]
  - Aggression [Unknown]
  - Diarrhoea [Not Recovered/Not Resolved]
  - Injury [Unknown]
  - General physical health deterioration [Recovering/Resolving]
  - Drug ineffective [Unknown]
  - Haematochezia [Recovered/Resolved]
  - Pain [Not Recovered/Not Resolved]
  - Colour blindness [Not Recovered/Not Resolved]
  - Fall [Unknown]

NARRATIVE: CASE EVENT DATE: 2013
